FAERS Safety Report 19209841 (Version 1)
Quarter: 2021Q2

REPORT INFORMATION
  Report Type: Spontaneous
  Country: US (occurrence: US)
  Receive Date: 20210504
  Receipt Date: 20210504
  Transmission Date: 20210717
  Serious: No
  Sender: FDA-Public Use
  Company Number: US-FARMAPROD-202103-0385

PATIENT
  Sex: Female

DRUGS (11)
  1. CEVIMELINE. [Concomitant]
     Active Substance: CEVIMELINE
  2. MURO?128 [Concomitant]
  3. HYDROXYCHLOROQUINE [Concomitant]
     Active Substance: HYDROXYCHLOROQUINE
  4. LISINOPRIL. [Concomitant]
     Active Substance: LISINOPRIL
  5. AMLODIPINE [Concomitant]
     Active Substance: AMLODIPINE BESYLATE
  6. OXERVATE [Suspect]
     Active Substance: CENEGERMIN-BKBJ
     Indication: NEUROTROPHIC KERATOPATHY
     Route: 047
     Dates: start: 20210225
  7. FML SERUM DROPS [Concomitant]
  8. BLOOD SERUM DROPS [Concomitant]
  9. XIIDRA [Concomitant]
     Active Substance: LIFITEGRAST
  10. ZADITOR [Concomitant]
     Active Substance: KETOTIFEN FUMARATE
  11. DOXYCYCLINE. [Concomitant]
     Active Substance: DOXYCYCLINE

REACTIONS (1)
  - Eye pain [Unknown]
